FAERS Safety Report 8553065-X (Version None)
Quarter: 2012Q3

REPORT INFORMATION
  Report Type: 
  Country: None (occurrence: None)
  Receive Date: 20120731
  Receipt Date: 20120719
  Transmission Date: 20120928
  Serious: Yes (Hospitalization)
  Sender: FDA-Public Use
  Company Number: BR-SANOFI-AVENTIS-2012SA051626

PATIENT
  Age: 9 Year
  Sex: Male
  Weight: 41 kg

DRUGS (3)
  1. DEVICE NOS [Suspect]
     Indication: DEVICE THERAPY
  2. LANTUS [Suspect]
     Route: 058
     Dates: start: 20070101
  3. HUMALOG [Suspect]
     Dosage: DOSE:5 UNIT(S)
     Route: 058

REACTIONS (5)
  - FEELING ABNORMAL [None]
  - CRYING [None]
  - PAIN [None]
  - HYPERGLYCAEMIA [None]
  - VOMITING [None]
